FAERS Safety Report 7781242-4 (Version None)
Quarter: 2011Q3

REPORT INFORMATION
  Report Type: 
  Country: None (occurrence: None)
  Receive Date: 20110927
  Receipt Date: 20110915
  Transmission Date: 20111222
  Serious: Yes (Other)
  Sender: FDA-Public Use
  Company Number: US-BAYER-2011-087377

PATIENT
  Age: 21 Year
  Sex: Male
  Weight: 79.365 kg

DRUGS (2)
  1. FLEXERIL [Concomitant]
  2. ALEVE (CAPLET) [Suspect]
     Indication: BACK PAIN
     Dosage: 2 DF, ONCE, BOTTLE COUNT 50S
     Route: 048
     Dates: start: 20110913, end: 20110913

REACTIONS (2)
  - AMNESIA [None]
  - FEELING ABNORMAL [None]
